FAERS Safety Report 8540836 (Version 3)
Quarter: 2012Q4

REPORT INFORMATION
  Report Type: 
  Country: JP (occurrence: JP)
  Receive Date: 20120502
  Receipt Date: 20121022
  Transmission Date: 20130627
  Serious: Yes (Death)
  Sender: FDA-Public Use
  Company Number: JP-AMGEN-JPNSP2012026044

PATIENT
  Age: 79 Year
  Sex: Female

DRUGS (7)
  1. ENBREL [Suspect]
     Indication: RHEUMATOID ARTHRITIS
     Dosage: 25 mg, weekly
     Route: 058
     Dates: start: 20100317, end: 20111208
  2. RHEUMATREX /00113802/ [Concomitant]
     Indication: RHEUMATOID ARTHRITIS
     Dosage: UNK
     Route: 048
  3. PREDNISOLONE [Concomitant]
     Indication: RHEUMATOID ARTHRITIS
     Dosage: 5 mg, 1x/day
     Route: 048
     Dates: end: 20120116
  4. LOXONIN [Concomitant]
     Indication: RHEUMATOID ARTHRITIS
     Dosage: 60 mg, 2x/day
     Route: 048
     Dates: end: 20120116
  5. SELBEX [Concomitant]
     Indication: PROPHYLAXIS AGAINST GASTROINTESTINAL ULCER
     Dosage: 50 mg, 2x/day
     Route: 048
     Dates: end: 20120116
  6. FOSAMAC [Concomitant]
     Indication: OSTEOPOROSIS
     Dosage: 35 mg, weekly
     Route: 048
     Dates: end: 20111217
  7. ONE-ALPHA [Concomitant]
     Indication: OSTEOPOROSIS
     Dosage: 1 ug, 1x/day
     Route: 048
     Dates: end: 20120116

REACTIONS (1)
  - Thyroid cancer [Fatal]
